FAERS Safety Report 25110241 (Version 2)
Quarter: 2025Q2

REPORT INFORMATION
  Report Type: Spontaneous
  Country: FR (occurrence: FR)
  Receive Date: 20250324
  Receipt Date: 20250402
  Transmission Date: 20250717
  Serious: Yes (Hospitalization)
  Sender: JOHNSON AND JOHNSON
  Company Number: None

PATIENT
  Age: 63 Year
  Sex: Male
  Weight: 93 kg

DRUGS (29)
  1. RISPERDAL [Interacting]
     Active Substance: RISPERIDONE
     Indication: Major depression
     Route: 048
     Dates: start: 20240404, end: 20240408
  2. RISPERDAL [Interacting]
     Active Substance: RISPERIDONE
     Route: 048
     Dates: start: 20240409, end: 20240417
  3. RISPERDAL [Interacting]
     Active Substance: RISPERIDONE
     Route: 048
     Dates: start: 20240418, end: 20240503
  4. RISPERDAL [Interacting]
     Active Substance: RISPERIDONE
     Route: 048
     Dates: start: 20240504, end: 20240513
  5. RISPERDAL [Interacting]
     Active Substance: RISPERIDONE
     Route: 048
     Dates: start: 20240514, end: 20240517
  6. RISPERDAL [Interacting]
     Active Substance: RISPERIDONE
     Route: 048
     Dates: start: 20240518, end: 20240531
  7. RISPERDAL [Interacting]
     Active Substance: RISPERIDONE
     Route: 048
     Dates: start: 20240601, end: 20240604
  8. RISPERDAL [Interacting]
     Active Substance: RISPERIDONE
     Route: 048
     Dates: start: 20240605, end: 20240607
  9. RISPERDAL [Interacting]
     Active Substance: RISPERIDONE
     Route: 048
     Dates: start: 20240608, end: 20240613
  10. RISPERDAL [Interacting]
     Active Substance: RISPERIDONE
     Route: 048
     Dates: start: 202403, end: 20240613
  11. TROPATEPINE HYDROCHLORIDE [Suspect]
     Active Substance: TROPATEPINE HYDROCHLORIDE
     Indication: Tremor
     Route: 048
     Dates: start: 20240607, end: 20240611
  12. TROPATEPINE HYDROCHLORIDE [Suspect]
     Active Substance: TROPATEPINE HYDROCHLORIDE
     Route: 048
     Dates: start: 20240619, end: 20240620
  13. OLANZAPINE [Interacting]
     Active Substance: OLANZAPINE
     Indication: Major depression
     Route: 048
     Dates: start: 20240531, end: 20240604
  14. OLANZAPINE [Interacting]
     Active Substance: OLANZAPINE
     Route: 048
     Dates: start: 20240605, end: 20240607
  15. OLANZAPINE [Interacting]
     Active Substance: OLANZAPINE
     Route: 048
     Dates: start: 20240608, end: 20240610
  16. OLANZAPINE [Interacting]
     Active Substance: OLANZAPINE
     Route: 048
     Dates: start: 20240611, end: 20240613
  17. OLANZAPINE [Interacting]
     Active Substance: OLANZAPINE
     Route: 048
     Dates: start: 20240515, end: 20240613
  18. CLOMIPRAMINE HYDROCHLORIDE [Interacting]
     Active Substance: CLOMIPRAMINE HYDROCHLORIDE
     Indication: Major depression
     Route: 048
     Dates: start: 20240522, end: 20240526
  19. CLOMIPRAMINE HYDROCHLORIDE [Interacting]
     Active Substance: CLOMIPRAMINE HYDROCHLORIDE
     Route: 048
     Dates: start: 20240527, end: 20240531
  20. CLOMIPRAMINE HYDROCHLORIDE [Interacting]
     Active Substance: CLOMIPRAMINE HYDROCHLORIDE
     Route: 048
     Dates: start: 20240601, end: 20240610
  21. CLOMIPRAMINE HYDROCHLORIDE [Interacting]
     Active Substance: CLOMIPRAMINE HYDROCHLORIDE
     Route: 048
     Dates: start: 20240611, end: 20240613
  22. CLOMIPRAMINE HYDROCHLORIDE [Interacting]
     Active Substance: CLOMIPRAMINE HYDROCHLORIDE
     Route: 048
     Dates: start: 202403, end: 20240613
  23. LOXAPINE [Concomitant]
     Active Substance: LOXAPINE
     Indication: Delirium
     Route: 048
     Dates: start: 20240608, end: 20240608
  24. ATORVASTATIN [Concomitant]
     Active Substance: ATORVASTATIN
     Indication: Hypertension
     Route: 048
  25. ATORVASTATIN [Concomitant]
     Active Substance: ATORVASTATIN
     Route: 048
  26. BISOPROLOL FUMARATE [Concomitant]
     Active Substance: BISOPROLOL FUMARATE
     Indication: Hypertension
     Route: 048
  27. DOLIPRANE [Concomitant]
     Active Substance: ACETAMINOPHEN
     Indication: Pyrexia
     Route: 048
  28. HYDROCHLOROTHIAZIDE [Concomitant]
     Active Substance: HYDROCHLOROTHIAZIDE
     Indication: Hypertension
     Route: 048
  29. OXAZEPAM [Concomitant]
     Active Substance: OXAZEPAM
     Indication: Mixed anxiety and depressive disorder
     Route: 048

REACTIONS (2)
  - Drug interaction [Recovered/Resolved]
  - Neuroleptic malignant syndrome [Recovered/Resolved]

NARRATIVE: CASE EVENT DATE: 20240608
